FAERS Safety Report 4769938-X (Version None)
Quarter: 2005Q3

REPORT INFORMATION
  Report Type: 
  Country: None (occurrence: None)
  Receive Date: 20050915
  Receipt Date: 20050721
  Transmission Date: 20060218
  Serious: Yes (Other)
  Sender: FDA-Public Use
  Company Number: AU-GLAXOSMITHKLINE-B0388374A

PATIENT
  Age: 59 Year
  Sex: Female

DRUGS (3)
  1. ACETAMINOPHEN [Suspect]
     Indication: ARTHRITIS
     Dosage: 665MG SEE DOSAGE TEXT
     Route: 048
  2. ACETAMINOPHEN [Suspect]
     Indication: ARTHRITIS
     Route: 048
  3. PANAMAX [Suspect]
     Indication: ARTHRITIS
     Route: 048

REACTIONS (3)
  - DRUG INEFFECTIVE [None]
  - LOWER GASTROINTESTINAL HAEMORRHAGE [None]
  - OVERDOSE [None]
